FAERS Safety Report 17566940 (Version 1)
Quarter: 2020Q1

REPORT INFORMATION
  Report Type: Spontaneous
  Country: US (occurrence: US)
  Receive Date: 20200320
  Receipt Date: 20200320
  Transmission Date: 20200409
  Serious: No
  Sender: FDA-Public Use
  Company Number: US-ASTRAZENECA-2020SE28660

PATIENT
  Sex: Male

DRUGS (4)
  1. GENERIC BUDESONIDE [Concomitant]
     Indication: COUGH
     Dosage: UNKNOWN
     Route: 065
  2. ADVAIR HFA [Concomitant]
     Active Substance: FLUTICASONE PROPIONATE\SALMETEROL XINAFOATE
     Dosage: UNKNOWN
     Route: 065
  3. PULMICORT FLEXHALER [Suspect]
     Active Substance: BUDESONIDE
     Dosage: 90.0UG UNKNOWN
     Route: 055
  4. PULMICORT RESPULES [Suspect]
     Active Substance: BUDESONIDE
     Indication: COUGH
     Dosage: UNKNOWN DOSE AND FREQUENCY
     Route: 055

REACTIONS (3)
  - Cough [Unknown]
  - Intentional device misuse [Unknown]
  - Device failure [Unknown]
